FAERS Safety Report 24568080 (Version 2)
Quarter: 2025Q3

REPORT INFORMATION
  Report Type: Other
  Country: CA (occurrence: CA)
  Receive Date: 20241031
  Receipt Date: 20250707
  Transmission Date: 20251020
  Serious: Yes (Other)
  Sender: GLENMARK
  Company Number: CA-GLENMARK PHARMACEUTICALS-2024GMK095060

PATIENT
  Age: 63 Year
  Sex: Male
  Weight: 95.254 kg

DRUGS (2)
  1. RYALTRIS [Suspect]
     Active Substance: MOMETASONE FUROATE MONOHYDRATE\OLOPATADINE HYDROCHLORIDE
     Indication: Upper-airway cough syndrome
     Route: 045
  2. RYALTRIS [Suspect]
     Active Substance: MOMETASONE FUROATE MONOHYDRATE\OLOPATADINE HYDROCHLORIDE
     Indication: Paranasal sinus inflammation

REACTIONS (3)
  - Ear discomfort [Recovered/Resolved]
  - Ear swelling [Recovered/Resolved]
  - Product use in unapproved indication [Unknown]
